FAERS Safety Report 7479103-3 (Version None)
Quarter: 2011Q2

REPORT INFORMATION
  Report Type: 
  Country: None (occurrence: None)
  Receive Date: 20110513
  Receipt Date: 20110509
  Transmission Date: 20111010
  Serious: Yes (Congenital Anomaly)
  Sender: FDA-Public Use
  Company Number: US-GILEAD-2011-0037738

PATIENT
  Sex: Male

DRUGS (3)
  1. COMBIVIR [Suspect]
     Indication: HIV INFECTION
     Route: 064
     Dates: start: 20100912, end: 20101210
  2. TRUVADA [Suspect]
     Indication: HIV INFECTION
     Route: 064
     Dates: start: 20101210
  3. KALETRA [Suspect]
     Indication: HIV INFECTION
     Route: 064
     Dates: start: 20100912

REACTIONS (3)
  - PATENT DUCTUS ARTERIOSUS [None]
  - TRISOMY 21 [None]
  - ATRIOVENTRICULAR SEPTAL DEFECT [None]
